FAERS Safety Report 23920989 (Version 1)
Quarter: 2024Q2

REPORT INFORMATION
  Report Type: Spontaneous
  Country: DE (occurrence: DE)
  Receive Date: 20240530
  Receipt Date: 20240530
  Transmission Date: 20240716
  Serious: Yes (Other)
  Sender: FDA-Public Use
  Company Number: DE-ORG100031861-724

PATIENT
  Age: 80 Year
  Sex: Female

DRUGS (5)
  1. PANCRELIPASE [Suspect]
     Active Substance: PANCRELIPASE
     Indication: Product used for unknown indication
     Route: 048
  2. LEVOTHYROXINE SODIUM [Concomitant]
     Active Substance: LEVOTHYROXINE SODIUM
     Indication: Product used for unknown indication
     Route: 065
  3. VALSARTAN [Concomitant]
     Active Substance: VALSARTAN
     Indication: Product used for unknown indication
     Route: 065
  4. PANCREATIN [Suspect]
     Active Substance: PANCRELIPASE
     Indication: Pancreatic failure
     Dosage: 3 TIMES DAILY AT MEALS, PANKREATAN 25000
     Route: 048
  5. INDAPAMIDE [Concomitant]
     Active Substance: INDAPAMIDE
     Indication: Product used for unknown indication
     Route: 065

REACTIONS (7)
  - Blood pressure increased [Unknown]
  - Gastrointestinal disorder [Unknown]
  - Nausea [Unknown]
  - Dizziness [Unknown]
  - Dysphagia [Unknown]
  - Urticaria [Unknown]
  - Tongue discomfort [Unknown]
